FAERS Safety Report 9539557 (Version 1)
Quarter: 2013Q2

REPORT INFORMATION
  Report Type: Spontaneous
  Country: US (occurrence: None)
  Receive Date: 20130521
  Receipt Date: 20130521
  Transmission Date: 20140414
  Serious: No
  Sender: FDA-Public Use
  Company Number: 1000043992

PATIENT
  Age: 88 Year
  Sex: Female

DRUGS (6)
  1. TUDORZA PRESSAIR [Suspect]
     Indication: CHRONIC OBSTRUCTIVE PULMONARY DISEASE
     Dosage: 800 MCG (400 2 IN 1 D)
     Dates: start: 201303
  2. PREMARIN (ESTROGENSCONJUGATED)(ESTROGENSCONJUGATED) [Concomitant]
  3. VITAMIN D (VITAMIN D) (VITAMIN D) [Concomitant]
  4. CRANBERRY EXTRACT (CRANBERRY EXTRACT) (CRANBERRY EXTRACT) [Concomitant]
  5. BIOTIN (BIOTIN) (BIOTIN) [Concomitant]
  6. ASPIRIN (ACETYLSALICYLIC ACID) (ACEYTLSALICYLIC ACID) [Concomitant]

REACTIONS (3)
  - Rash [None]
  - Pruritus [None]
  - Urine output decreased [None]
